FAERS Safety Report 19382730 (Version 1)
Quarter: 2021Q2

REPORT INFORMATION
  Report Type: Spontaneous
  Country: US (occurrence: US)
  Receive Date: 20210607
  Receipt Date: 20210607
  Transmission Date: 20210717
  Serious: No
  Sender: FDA-Public Use
  Company Number: US-TAKEDA-2021TUS035138

PATIENT
  Sex: Male
  Weight: 39 kg

DRUGS (3)
  1. INTUNIV [Suspect]
     Active Substance: GUANFACINE HYDROCHLORIDE
     Dosage: 1 MILLIGRAM
     Route: 048
     Dates: start: 202009
  2. INTUNIV [Suspect]
     Active Substance: GUANFACINE HYDROCHLORIDE
     Dosage: 2 UNK
     Route: 048
     Dates: start: 202011
  3. CLONIDINE. [Suspect]
     Active Substance: CLONIDINE

REACTIONS (3)
  - Neuropsychiatric syndrome [Unknown]
  - Nightmare [Unknown]
  - Anxiety [Unknown]
